FAERS Safety Report 23938950 (Version 1)
Quarter: 2024Q2

REPORT INFORMATION
  Report Type: Spontaneous
  Country: CH (occurrence: CH)
  Receive Date: 20240604
  Receipt Date: 20240604
  Transmission Date: 20240716
  Serious: Yes (Hospitalization, Other)
  Sender: FDA-Public Use
  Company Number: None

PATIENT
  Age: 67 Year
  Sex: Female
  Weight: 70 kg

DRUGS (23)
  1. PEMBROLIZUMAB [Suspect]
     Active Substance: PEMBROLIZUMAB
     Indication: Metastatic bronchial carcinoma
     Dosage: LOCAL PHARMACY PRODUCT, 2 CYCLES FINISHED/TWICE GIVEN: ON DAY 1: 20230308 AND 20230328 OF EACH CY...
     Route: 041
     Dates: start: 20230308, end: 20230328
  2. PEMETREXED [Concomitant]
     Active Substance: PEMETREXED
     Indication: Metastatic bronchial carcinoma
     Dosage: LOCAL PHARMACY PRODUCT, 2 CYCLES FINISHED/TWICE GIVEN: ON DAY 1: 20230308 AND 20230328 OF EACH CY...
     Route: 041
     Dates: start: 20230308, end: 20230328
  3. CARBOPLATIN [Concomitant]
     Active Substance: CARBOPLATIN
     Indication: Metastatic bronchial carcinoma
     Dosage: LOCAL PHARMACY PRODUCT, 2 CYCLES FINISHED/TWICE GIVEN: ON DAY 1: 20230308 AND 20230328 OF EACH CY...
     Route: 041
  4. BISOPROLOL MEPHA [Concomitant]
     Dosage: 2.5 MG 0.5-0-1
     Route: 048
  5. METAMIZOLE [Concomitant]
     Active Substance: METAMIZOLE
     Dosage: 500 MG 2-2-2-2
     Route: 048
  6. HYDROMORPHONE [Concomitant]
     Active Substance: HYDROMORPHONE
     Dosage: 8 MG RETARD/SLOW-RELEASE 2-2-0-2
     Route: 048
  7. HYDROMORPHONE [Concomitant]
     Active Substance: HYDROMORPHONE
     Dosage: INSTANT RELEASE, ON-DEMAND ; AS NECESSARY
     Route: 048
  8. PREGABALIN [Concomitant]
     Active Substance: PREGABALIN
     Dosage: 100 MILLIGRAM
     Route: 048
     Dates: end: 202404
  9. PREGABALIN [Concomitant]
     Active Substance: PREGABALIN
     Dosage: 150 MG 2-0-1
     Route: 048
     Dates: start: 202404
  10. TIZANIDINE [Concomitant]
     Active Substance: TIZANIDINE
     Route: 048
  11. METHADONE [Concomitant]
     Active Substance: METHADONE HYDROCHLORIDE
     Dosage: 5 MG/ML ML 0.2-0-0-0.5
     Route: 048
  12. PANTOZOL [Concomitant]
     Active Substance: PANTOPRAZOLE SODIUM
     Route: 048
  13. SODIUM CHONDROITIN SULFATE [Concomitant]
     Active Substance: SODIUM CHONDROITIN SULFATE
     Dosage: 0-0-1
     Route: 048
     Dates: start: 202312
  14. ANDREAFOL [Concomitant]
     Route: 048
  15. SODIUM PICOSULFATE [Concomitant]
     Active Substance: SODIUM PICOSULFATE
     Route: 048
     Dates: end: 202404
  16. SODIUM PICOSULFATE [Concomitant]
     Active Substance: SODIUM PICOSULFATE
     Dosage: 20 GTT DROPS
     Dates: start: 202404
  17. POLYETHYLENE GLYCOL 3350\POTASSIUM CHLORIDE\SODIUM BICARBONATE\SODIUM [Concomitant]
     Active Substance: POLYETHYLENE GLYCOL 3350\POTASSIUM CHLORIDE\SODIUM BICARBONATE\SODIUM CHLORIDE
     Route: 048
  18. CYMBALTA [Concomitant]
     Active Substance: DULOXETINE HYDROCHLORIDE
     Route: 048
  19. REMERON [Concomitant]
     Active Substance: MIRTAZAPINE
     Route: 048
  20. SUPRADYN N [ASCORBIC ACID;BIOTIN;CALCIUM;CALCIUM GLYCEROPHOSPHATE;CALC [Concomitant]
     Route: 048
  21. CALCIUM\CHOLECALCIFEROL [Concomitant]
     Active Substance: CALCIUM\CHOLECALCIFEROL
     Dosage: 1000 MG / 800 E 1-0-0
     Route: 048
  22. CARBOHYDRATES\FATTY ACIDS\MINERALS\PROTEIN\VITAMINS [Concomitant]
     Active Substance: CARBOHYDRATES\FATTY ACIDS\MINERALS\PROTEIN\VITAMINS
     Route: 048
  23. XGEVA [Concomitant]
     Active Substance: DENOSUMAB
     Indication: Metastases to bone
     Dosage: DOSAGE UNKNOWN, ONCE GIVEN, UNKNOWN WHETHER THERAPY WILL BE CONTINUED
     Route: 058
     Dates: start: 20230318, end: 20230318

REACTIONS (2)
  - Hepatitis cholestatic [Recovering/Resolving]
  - Jaundice [Recovered/Resolved]

NARRATIVE: CASE EVENT DATE: 20230328
